FAERS Safety Report 22240174 (Version 1)
Quarter: 2023Q2

REPORT INFORMATION
  Report Type: Spontaneous
  Country: US (occurrence: US)
  Receive Date: 20230421
  Receipt Date: 20230421
  Transmission Date: 20230721
  Serious: Yes (Other)
  Sender: FDA-Public Use
  Company Number: US-SPECGX-T202202026

PATIENT
  Age: 26 Year
  Sex: Female

DRUGS (5)
  1. BUPRENORPHINE\NALOXONE [Suspect]
     Active Substance: BUPRENORPHINE\NALOXONE
     Indication: Drug use disorder
     Dosage: 8-2 MG DAILY
     Route: 060
  2. BUPRENORPHINE\NALOXONE [Suspect]
     Active Substance: BUPRENORPHINE\NALOXONE
     Dosage: 16-4 MG DAILY
     Route: 060
  3. BUPRENORPHINE\NALOXONE [Suspect]
     Active Substance: BUPRENORPHINE\NALOXONE
     Dosage: 12-3 MG DAILY
     Route: 060
  4. ACETAMINOPHEN\HYDROCODONE [Suspect]
     Active Substance: ACETAMINOPHEN\HYDROCODONE
     Indication: Pain
     Dosage: UNK
     Route: 065
  5. DEXTROAMPHET SACCHARAT, AMPHET ASPARTATE, DEXTROAMPHET SULFATE AND AMP [Suspect]
     Active Substance: AMPHETAMINE ASPARTATE\AMPHETAMINE ASPARTATE MONOHYDRATE\AMPHETAMINE SULFATE\DEXTROAMPHETAMINE SACCHA
     Indication: Product used for unknown indication
     Dosage: UNK
     Route: 065

REACTIONS (20)
  - Suicidal ideation [Unknown]
  - Central sleep apnoea syndrome [Recovered/Resolved]
  - Drug dependence [Unknown]
  - Loss of consciousness [Recovered/Resolved]
  - Substance use [Recovered/Resolved]
  - Accidental overdose [Recovered/Resolved]
  - Somnambulism [Recovered/Resolved]
  - Agitation [Unknown]
  - Posturing [Unknown]
  - Feeling guilty [Unknown]
  - Affective disorder [Recovering/Resolving]
  - Apathy [Recovering/Resolving]
  - Fatigue [Recovered/Resolved]
  - Irritability [Recovering/Resolving]
  - Hypopnoea [Recovered/Resolved]
  - Oxygen saturation decreased [Unknown]
  - Depressed mood [Recovering/Resolving]
  - Depression [Recovering/Resolving]
  - Hypersomnia [Recovered/Resolved]
  - Treatment noncompliance [Unknown]
